FAERS Safety Report 13696365 (Version 3)
Quarter: 2017Q3

REPORT INFORMATION
  Report Type: Spontaneous
  Country: DE (occurrence: DE)
  Receive Date: 20170628
  Receipt Date: 20170718
  Transmission Date: 20171127
  Serious: Yes (Hospitalization)
  Sender: FDA-Public Use
  Company Number: DE-AUROBINDO-AUR-APL-2017-36053

PATIENT
  Age: 41 Year
  Sex: Male
  Weight: 90 kg

DRUGS (6)
  1. OLANZAPIN PUREN 15MG ORODISPERSIBLE TABLET [Suspect]
     Active Substance: OLANZAPINE
     Dosage: 20 MG, DAILY
     Route: 048
     Dates: start: 201705, end: 201706
  2. OLANZAPIN PUREN 15MG ORODISPERSIBLE TABLET [Suspect]
     Active Substance: OLANZAPINE
     Dosage: 25 MG, DAILY
     Route: 048
     Dates: start: 201706
  3. OLANZAPIN PUREN 15MG ORODISPERSIBLE TABLET [Suspect]
     Active Substance: OLANZAPINE
     Indication: SCHIZOPHRENIA
     Dosage: 15 MG, TWO TIMES A DAY
     Route: 048
     Dates: start: 20170504, end: 20170509
  4. LEVOMETHADONE [Suspect]
     Active Substance: LEVOMETHADONE
     Indication: DRUG USE DISORDER
     Dosage: 50 MG, DAILY
     Route: 048
  5. LORAZEPAM. [Concomitant]
     Active Substance: LORAZEPAM
     Indication: TENSION
     Dosage: 4X4 MG/DAY
     Route: 048
  6. RIVAROXABAN [Concomitant]
     Active Substance: RIVAROXABAN
     Indication: DEEP VEIN THROMBOSIS
     Dosage: 20 MG, DAILY
     Route: 048

REACTIONS (14)
  - Gait inability [Recovering/Resolving]
  - Scrotal swelling [Recovering/Resolving]
  - Erysipelas [Recovered/Resolved]
  - Drug interaction [Recovering/Resolving]
  - Oedema peripheral [Recovering/Resolving]
  - Pulse absent [Recovering/Resolving]
  - Swelling [Recovering/Resolving]
  - Sinus tachycardia [Recovering/Resolving]
  - Skin erosion [Recovered/Resolved]
  - Lymphadenitis [Recovered/Resolved]
  - Skin lesion [Recovering/Resolving]
  - Erythema [Recovering/Resolving]
  - Splenomegaly [Recovering/Resolving]
  - Lymphoedema [Recovering/Resolving]

NARRATIVE: CASE EVENT DATE: 20170509
